FAERS Safety Report 13720854 (Version 1)
Quarter: 2017Q3

REPORT INFORMATION
  Report Type: Spontaneous
  Country: DE (occurrence: DE)
  Receive Date: 20170706
  Receipt Date: 20170706
  Transmission Date: 20171127
  Serious: Yes (Congenital Anomaly, Other)
  Sender: FDA-Public Use
  Company Number: DE-TORRENT-00006662

PATIENT
  Age: 1 Day
  Sex: Female
  Weight: 1 kg

DRUGS (10)
  1. PREDNISOLONE. [Concomitant]
     Active Substance: PREDNISOLONE
  2. VIGANTOLETTEN 1000 [Concomitant]
  3. ASS 100 [Concomitant]
     Active Substance: ASPIRIN
  4. CARVEDILOL. [Suspect]
     Active Substance: CARVEDILOL
  5. LOSARTAN POTASSIUM. [Suspect]
     Active Substance: LOSARTAN POTASSIUM
  6. VITAMIN B12 [Concomitant]
     Active Substance: CYANOCOBALAMIN
  7. CELESTAN [Concomitant]
     Active Substance: BETAMETHASONE
  8. AZATHIOPRINE. [Suspect]
     Active Substance: AZATHIOPRINE
  9. TORASEMIDE [Suspect]
     Active Substance: TORSEMIDE
  10. PANTOPRAZOLE [Concomitant]
     Active Substance: PANTOPRAZOLE

REACTIONS (5)
  - Ventricular septal defect [Not Recovered/Not Resolved]
  - Atrial septal defect [Unknown]
  - Foetal exposure during pregnancy [Unknown]
  - Right aortic arch [Not Recovered/Not Resolved]
  - Foetal growth restriction [Unknown]

NARRATIVE: CASE EVENT DATE: 20170131
